FAERS Safety Report 10215276 (Version 2)
Quarter: 2014Q2

REPORT INFORMATION
  Report Type: Report from Study
  Country: IN (occurrence: IN)
  Receive Date: 20140603
  Receipt Date: 20140603
  Transmission Date: 20141212
  Serious: Yes (Death)
  Sender: FDA-Public Use
  Company Number: PHHY2014IN058008

PATIENT
  Sex: Female

DRUGS (2)
  1. AFINITOR [Suspect]
     Indication: PANCREATIC NEUROENDOCRINE TUMOUR
     Dosage: UNK UKN, DAILY
     Route: 048
  2. AFINITOR [Suspect]
     Dosage: UNK UKN, DAILY
     Route: 048

REACTIONS (3)
  - Death [Fatal]
  - Jaundice [Recovering/Resolving]
  - Stomatitis [Recovering/Resolving]
